FAERS Safety Report 21075339 (Version 1)
Quarter: 2022Q3

REPORT INFORMATION
  Report Type: Spontaneous
  Country: CN (occurrence: CN)
  Receive Date: 20220713
  Receipt Date: 20220713
  Transmission Date: 20221027
  Serious: Yes (Hospitalization, Other)
  Sender: FDA-Public Use
  Company Number: None

PATIENT
  Age: 24 Year
  Sex: Male
  Weight: 70.5 kg

DRUGS (16)
  1. CYCLOPHOSPHAMIDE [Suspect]
     Active Substance: CYCLOPHOSPHAMIDE
     Indication: Diffuse large B-cell lymphoma stage I
     Dosage: PRIOR REGIMEN
     Route: 041
  2. CYCLOPHOSPHAMIDE [Suspect]
     Active Substance: CYCLOPHOSPHAMIDE
     Dosage: CYCLOPHOSPHAMIDE FOR INJECTION (1.2G) + 0.9% SODIUM CHLORIDE INJECTION (100ML); D1
     Route: 041
     Dates: start: 20220611, end: 20220611
  3. CYCLOPHOSPHAMIDE [Suspect]
     Active Substance: CYCLOPHOSPHAMIDE
     Dosage: 0.9% SODIUM CHLORIDE INJECTION (100ML) + CYCLOPHOSPHAMIDE FOR INJECTION (0.28G) D2-5
     Route: 041
     Dates: start: 20220612, end: 20220616
  4. SODIUM CHLORIDE [Suspect]
     Active Substance: SODIUM CHLORIDE
     Indication: Medication dilution
     Dosage: CYCLOPHOSPHAMIDE FOR INJECTION (1.2G) + 0.9% SODIUM CHLORIDE INJECTION (100ML); D1
     Route: 041
     Dates: start: 20220611, end: 20220611
  5. SODIUM CHLORIDE [Suspect]
     Active Substance: SODIUM CHLORIDE
     Dosage: SODIUM CHLORIDE INJECTION (100ML) + CYCLOPHOSPHAMIDE FOR INJECTION (0.28G) D2-5
     Route: 041
     Dates: start: 20220612, end: 20220616
  6. SODIUM CHLORIDE [Suspect]
     Active Substance: SODIUM CHLORIDE
     Dosage: VINCRISTINE SULFATE FOR INJECTION (2MG) + 0.9% SODIUM CHLORIDE INJECTION (20ML); D1
     Route: 041
     Dates: start: 20220611, end: 20220611
  7. SODIUM CHLORIDE [Suspect]
     Active Substance: SODIUM CHLORIDE
     Dosage: 0.9% SODIUM CHLORIDE INJECTION (100ML) + METHOTREXATE INJECTION (500MG)
     Route: 041
     Dates: start: 20220623, end: 20220623
  8. SODIUM CHLORIDE [Suspect]
     Active Substance: SODIUM CHLORIDE
     Indication: Medication dilution
     Dosage: 0.9% SODIUM CHLORIDE INJECTION (500ML) + METHOTREXATE INJECTION (2500MG) FOR 11 HOURS
     Route: 041
  9. DEXTROSE [Suspect]
     Active Substance: DEXTROSE
     Indication: Medication dilution
     Dosage: PIRARUBICIN HYDROCHLORIDE FOR INJECTION (60MG) + 5% GLUCOSE INJECTION (100ML)
     Route: 041
     Dates: start: 20220611, end: 20220611
  10. PIRARUBICIN HYDROCHLORIDE [Suspect]
     Active Substance: PIRARUBICIN HYDROCHLORIDE
     Indication: Diffuse large B-cell lymphoma stage I
     Dosage: PRIOR REGIMEN
     Route: 041
  11. PIRARUBICIN HYDROCHLORIDE [Suspect]
     Active Substance: PIRARUBICIN HYDROCHLORIDE
     Dosage: PIRARUBICIN HYDROCHLORIDE FOR INJECTION (60MG) + 5% GLUCOSE INJECTION (100ML)
     Route: 041
     Dates: start: 20220611, end: 20220611
  12. VINCRISTINE SULFATE [Suspect]
     Active Substance: VINCRISTINE SULFATE
     Indication: Diffuse large B-cell lymphoma stage I
     Dosage: PRIOR REGIMEN
     Route: 041
  13. VINCRISTINE SULFATE [Suspect]
     Active Substance: VINCRISTINE SULFATE
     Dosage: VINCRISTINE SULFATE FOR INJECTION (2MG) + 0.9% SODIUM CHLORIDE INJECTION (20ML); D1
     Route: 041
     Dates: start: 20220611, end: 20220611
  14. METHOTREXATE [Suspect]
     Active Substance: METHOTREXATE
     Indication: Diffuse large B-cell lymphoma stage I
     Dosage: PRIOR REGIMEN
     Route: 041
  15. METHOTREXATE [Suspect]
     Active Substance: METHOTREXATE
     Dosage: 0.9% SODIUM CHLORIDE INJECTION (500ML) + METHOTREXATE INJECTION (2500MG FOR 11 HOURS
     Route: 041
     Dates: start: 20220623, end: 20220623
  16. METHOTREXATE [Suspect]
     Active Substance: METHOTREXATE
     Dosage: 0.9% SODIUM CHLORIDE INJECTION (100ML) + METHOTREXATE INJECTION (500MG)
     Route: 041
     Dates: start: 20220623, end: 20220623

REACTIONS (5)
  - White blood cell count decreased [Recovered/Resolved]
  - White blood cell count decreased [Recovering/Resolving]
  - Neutropenia [Recovered/Resolved]
  - Neutrophil count decreased [Recovering/Resolving]
  - Platelet count decreased [Recovering/Resolving]

NARRATIVE: CASE EVENT DATE: 20220629
